FAERS Safety Report 7475263-9 (Version None)
Quarter: 2011Q1

REPORT INFORMATION
  Report Type: 
  Country: None (occurrence: None)
  Receive Date: 20110302
  Receipt Date: 20100928
  Transmission Date: 20110831
  Serious: Yes (Death)
  Sender: FDA-Public Use
  Company Number: 163-21880-10062574

PATIENT
  Age: 56 Year
  Sex: Male

DRUGS (5)
  1. COUMADIN [Concomitant]
  2. NORVASC [Concomitant]
  3. DECADRON [Concomitant]
  4. FLUID (BARIUM SULFATE) [Concomitant]
  5. REVLIMID [Suspect]
     Indication: MULTIPLE MYELOMA
     Dosage: 25 MG, DAY X 21D, REST 7 CYCLE Q 28, PO
     Route: 048
     Dates: start: 20090805, end: 20100609

REACTIONS (3)
  - CARDIO-RESPIRATORY ARREST [None]
  - MULTI-ORGAN FAILURE [None]
  - SEPTIC SHOCK [None]
